FAERS Safety Report 9548727 (Version 3)
Quarter: 2013Q4

REPORT INFORMATION
  Report Type: Spontaneous
  Country: VE (occurrence: None)
  Receive Date: 20130919
  Receipt Date: 20131022
  Transmission Date: 20140711
  Serious: Yes (Other)
  Sender: FDA-Public Use
  Company Number: VAL_02728_2013

PATIENT
  Age: 54 Year
  Sex: Female

DRUGS (5)
  1. LOPRESSOR [Suspect]
     Indication: ARRHYTHMIA
     Route: 048
     Dates: end: 20130902
  2. BENICAR [Concomitant]
  3. DI-EUDRIN [Concomitant]
  4. CORASPIRINA [Concomitant]
  5. FISH OIL [Concomitant]

REACTIONS (2)
  - Therapy cessation [None]
  - Blood pressure systolic increased [None]
